FAERS Safety Report 14168222 (Version 2)
Quarter: 2018Q2

REPORT INFORMATION
  Report Type: Spontaneous
  Country: US (occurrence: US)
  Receive Date: 20171107
  Receipt Date: 20180515
  Transmission Date: 20180711
  Serious: No
  Sender: FDA-Public Use
  Company Number: US-SA-2017SA103150

PATIENT
  Age: 57 Year
  Sex: Female
  Weight: 99.79 kg

DRUGS (11)
  1. LANTUS [Concomitant]
     Active Substance: INSULIN GLARGINE
  2. TOUJEO [Suspect]
     Active Substance: INSULIN GLARGINE
     Indication: BLOOD GLUCOSE INCREASED
     Dosage: DOSE:70 UNIT(S)
     Route: 051
     Dates: start: 20170531
  3. LEVOTHYROXINE. [Concomitant]
     Active Substance: LEVOTHYROXINE
     Indication: THYROID DISORDER
     Route: 065
     Dates: start: 20170128
  4. SOLOSTAR [Suspect]
     Active Substance: DEVICE
     Indication: BLOOD GLUCOSE INCREASED
     Dates: start: 20170531
  5. HUMALOG [Concomitant]
     Active Substance: INSULIN LISPRO
  6. SOLOSTAR [Suspect]
     Active Substance: DEVICE
     Indication: TYPE 1 DIABETES MELLITUS
     Dates: start: 20170531
  7. SOLOSTAR [Suspect]
     Active Substance: DEVICE
     Indication: BLOOD GLUCOSE INCREASED
     Dates: start: 20170602, end: 20170605
  8. TOUJEO [Suspect]
     Active Substance: INSULIN GLARGINE
     Indication: TYPE 1 DIABETES MELLITUS
     Dosage: DOSE:70 UNIT(S)
     Route: 051
     Dates: start: 20170602, end: 20170605
  9. SOLOSTAR [Suspect]
     Active Substance: DEVICE
     Indication: TYPE 1 DIABETES MELLITUS
     Dates: start: 20170602, end: 20170605
  10. TOUJEO [Suspect]
     Active Substance: INSULIN GLARGINE
     Indication: TYPE 1 DIABETES MELLITUS
     Dosage: DOSE:70 UNIT(S)
     Route: 051
     Dates: start: 20170531
  11. TOUJEO [Suspect]
     Active Substance: INSULIN GLARGINE
     Indication: BLOOD GLUCOSE INCREASED
     Dosage: DOSE:70 UNIT(S)
     Route: 051
     Dates: start: 20170602, end: 20170605

REACTIONS (2)
  - Blood glucose increased [Recovered/Resolved]
  - Underdose [Unknown]

NARRATIVE: CASE EVENT DATE: 20170531
